FAERS Safety Report 8297263-1 (Version None)
Quarter: 2012Q1

REPORT INFORMATION
  Report Type: 
  Country: None (occurrence: None)
  Receive Date: 20120322
  Receipt Date: 20120105
  Transmission Date: 20120608
  Serious: Yes (Hospitalization)
  Sender: FDA-Public Use
  Company Number: UTC-014339

PATIENT
  Age: 55 Year
  Sex: Female
  Weight: 82.2 kg

DRUGS (7)
  1. DIGOXIN [Concomitant]
  2. LETAIRIS [Concomitant]
  3. DIURETICS (DIURETICS) [Concomitant]
  4. OXYGEN (OXYGEN) [Concomitant]
  5. COUMADIN [Concomitant]
  6. TYVASO [Suspect]
     Indication: PULMONARY ARTERIAL HYPERTENSION
     Dosage: 288 MCG (72 MCG,4 IN 1 D),INHALATION
     Route: 055
     Dates: start: 20100811
  7. ADCIRCA [Concomitant]

REACTIONS (2)
  - CHEST PAIN [None]
  - DYSPNOEA [None]
